FAERS Safety Report 8541836-5 (Version None)
Quarter: 2012Q3

REPORT INFORMATION
  Report Type: 
  Country: None (occurrence: None)
  Receive Date: 20120726
  Receipt Date: 20110909
  Transmission Date: 20120928
  Serious: No
  Sender: FDA-Public Use
  Company Number: US-ASTRAZENECA-2011SE54531

PATIENT
  Age: 41 Year

DRUGS (1)
  1. SEROQUEL XR [Suspect]
     Route: 048

REACTIONS (4)
  - PSYCHOMOTOR HYPERACTIVITY [None]
  - INSOMNIA [None]
  - IMPULSIVE BEHAVIOUR [None]
  - MANIA [None]
